FAERS Safety Report 20036715 (Version 1)
Quarter: 2021Q4

REPORT INFORMATION
  Report Type: Spontaneous
  Country: CN (occurrence: None)
  Receive Date: 20211105
  Receipt Date: 20211105
  Transmission Date: 20220303
  Serious: Yes (Other)
  Sender: FDA-Public Use
  Company Number: CN-ROCHE-2945796

PATIENT
  Age: 64 Year
  Sex: Male
  Weight: 69 kg

DRUGS (6)
  1. TECENTRIQ [Suspect]
     Active Substance: ATEZOLIZUMAB
     Indication: Small cell lung cancer
     Dosage: 04-AUG-2020, 24-AUG-2020, 15-SEP-2020, 06-OCT-2020, 27-OCT-2020
     Route: 041
  2. TECENTRIQ [Suspect]
     Active Substance: ATEZOLIZUMAB
     Indication: Metastasis
  3. ETOPOSIDE [Concomitant]
     Active Substance: ETOPOSIDE
     Indication: Small cell lung cancer
     Dosage: 04-AUG-2020, 24-AUG-2020, 15-SEP-2020, 06-OCT-2020, 27-OCT-2020, 21-NOV-2020
     Route: 041
  4. ETOPOSIDE [Concomitant]
     Active Substance: ETOPOSIDE
     Indication: Metastasis
  5. CARBOPLATIN [Concomitant]
     Active Substance: CARBOPLATIN
     Indication: Small cell lung cancer
     Dosage: 04-AUG-2020, 24-AUG-2020, 15-SEP-2020, 06-OCT-2020, 27-OCT-2020, 21-NOV-2020
     Route: 041
  6. CARBOPLATIN [Concomitant]
     Active Substance: CARBOPLATIN
     Indication: Metastasis

REACTIONS (8)
  - Myelosuppression [Unknown]
  - Abdominal discomfort [Unknown]
  - Constipation [Unknown]
  - Asthenia [Unknown]
  - Hiccups [Unknown]
  - Hepatic function abnormal [Unknown]
  - Nausea [Unknown]
  - Vomiting [Unknown]

NARRATIVE: CASE EVENT DATE: 20200804
